FAERS Safety Report 10531355 (Version 1)
Quarter: 2014Q4

REPORT INFORMATION
  Report Type: Spontaneous
  Country: FR (occurrence: FR)
  Receive Date: 20141021
  Receipt Date: 20141021
  Transmission Date: 20150529
  Serious: Yes (Hospitalization, Other)
  Sender: FDA-Public Use
  Company Number: FR-WATSON-2014-22283

PATIENT
  Age: 35 Year
  Sex: Male

DRUGS (2)
  1. BACLOFEN (UNKNOWN) [Suspect]
     Active Substance: BACLOFEN
     Indication: BINGE DRINKING
     Dosage: 210 MG, DAILY
     Route: 065
  2. BACLOFEN (UNKNOWN) [Suspect]
     Active Substance: BACLOFEN
     Indication: OFF LABEL USE

REACTIONS (4)
  - Delirium [Recovered/Resolved]
  - Rhabdomyolysis [Unknown]
  - Withdrawal syndrome [Unknown]
  - Off label use [Unknown]
